FAERS Safety Report 11581184 (Version 1)
Quarter: 2015Q4

REPORT INFORMATION
  Report Type: Spontaneous
  Country: US (occurrence: US)
  Receive Date: 20151001
  Receipt Date: 20151001
  Transmission Date: 20160304
  Serious: No
  Sender: FDA-Public Use
  Company Number: US-ROCHE-671769

PATIENT
  Age: 54 Year
  Sex: Female
  Weight: 79.8 kg

DRUGS (23)
  1. RIBASPHERE RIBAPAK [Suspect]
     Active Substance: RIBAVIRIN
     Dosage: DIVIDED DOSES
     Route: 048
  2. TRIAMTERENE. [Concomitant]
     Active Substance: TRIAMTERENE
     Route: 065
  3. AZITHROMYCIN [Concomitant]
     Active Substance: AZITHROMYCIN ANHYDROUS
     Indication: BRONCHITIS
     Route: 065
  4. SIMVASTATIN. [Concomitant]
     Active Substance: SIMVASTATIN
     Route: 065
  5. POTASSIUM [Concomitant]
     Active Substance: POTASSIUM
     Route: 065
  6. NEXIUM [Concomitant]
     Active Substance: ESOMEPRAZOLE MAGNESIUM
     Route: 065
  7. ABILIFY [Concomitant]
     Active Substance: ARIPIPRAZOLE
     Route: 065
  8. BENTYL [Concomitant]
     Active Substance: DICYCLOMINE HYDROCHLORIDE
     Route: 065
  9. ADVAIR HFA [Concomitant]
     Active Substance: FLUTICASONE PROPIONATE\SALMETEROL XINAFOATE
     Route: 065
  10. HCTZ [Concomitant]
     Active Substance: HYDROCHLOROTHIAZIDE
     Route: 065
  11. PROVIGIL [Concomitant]
     Active Substance: MODAFINIL
     Route: 065
  12. LEVOTHYROXINE. [Concomitant]
     Active Substance: LEVOTHYROXINE
     Indication: THYROID DISORDER
     Route: 065
  13. RIBASPHERE RIBAPAK [Suspect]
     Active Substance: RIBAVIRIN
     Indication: HEPATITIS C
     Dosage: DAILY DIVIDED DOSES; DRUG NAME REPORTED: RIBAPAK ^PAR^
     Route: 048
     Dates: start: 20091008, end: 20091213
  14. REGLAN [Concomitant]
     Active Substance: METOCLOPRAMIDE HYDROCHLORIDE
     Route: 065
  15. PEGASYS [Suspect]
     Active Substance: PEGINTERFERON ALFA-2A
     Indication: HEPATITIS C
     Dosage: FORM: PRE-FILLED SYRINGE
     Route: 058
  16. ALBUTEROL. [Concomitant]
     Active Substance: ALBUTEROL
     Route: 065
  17. LISINOPRIL. [Concomitant]
     Active Substance: LISINOPRIL
     Route: 065
  18. OMEPRAZOLE. [Concomitant]
     Active Substance: OMEPRAZOLE
     Route: 065
  19. RIBASPHERE RIBAPAK [Suspect]
     Active Substance: RIBAVIRIN
     Route: 048
  20. SINGULAIR [Concomitant]
     Active Substance: MONTELUKAST SODIUM
     Route: 065
  21. AMBIEN CR [Concomitant]
     Active Substance: ZOLPIDEM TARTRATE
     Route: 065
  22. CYMBALTA [Concomitant]
     Active Substance: DULOXETINE HYDROCHLORIDE
     Route: 065
  23. FLONASE [Concomitant]
     Active Substance: FLUTICASONE PROPIONATE
     Route: 065

REACTIONS (32)
  - Mouth injury [Unknown]
  - Injection site bruising [Not Recovered/Not Resolved]
  - Cough [Unknown]
  - Ecchymosis [Not Recovered/Not Resolved]
  - Dizziness [Not Recovered/Not Resolved]
  - Haemorrhoids [Not Recovered/Not Resolved]
  - Pain in extremity [Not Recovered/Not Resolved]
  - Paraesthesia [Not Recovered/Not Resolved]
  - Gingival bleeding [Unknown]
  - Nasal dryness [Unknown]
  - White blood cell count decreased [Unknown]
  - Headache [Not Recovered/Not Resolved]
  - Dysgeusia [Unknown]
  - Gait disturbance [Not Recovered/Not Resolved]
  - Asthenia [Not Recovered/Not Resolved]
  - Weight decreased [Not Recovered/Not Resolved]
  - Neck pain [Not Recovered/Not Resolved]
  - Anxiety [Not Recovered/Not Resolved]
  - Haemoglobin decreased [Not Recovered/Not Resolved]
  - Rash [Not Recovered/Not Resolved]
  - Neuropathy peripheral [Not Recovered/Not Resolved]
  - Fatigue [Not Recovered/Not Resolved]
  - Vision blurred [Not Recovered/Not Resolved]
  - Sinus headache [Not Recovered/Not Resolved]
  - Haemorrhoidal haemorrhage [Unknown]
  - Dysgeusia [Not Recovered/Not Resolved]
  - Nasal ulcer [Not Recovered/Not Resolved]
  - Back pain [Not Recovered/Not Resolved]
  - Fungal skin infection [Not Recovered/Not Resolved]
  - Fungal infection [Not Recovered/Not Resolved]
  - Erythema [Unknown]
  - Pain [Not Recovered/Not Resolved]

NARRATIVE: CASE EVENT DATE: 20091008
